FAERS Safety Report 20821920 (Version 2)
Quarter: 2022Q3

REPORT INFORMATION
  Report Type: Spontaneous
  Country: IT (occurrence: IT)
  Receive Date: 20220512
  Receipt Date: 20220723
  Transmission Date: 20221027
  Serious: Yes (Hospitalization, Other)
  Sender: FDA-Public Use
  Company Number: IT-STADA-248108

PATIENT
  Age: 56 Year
  Sex: Male

DRUGS (8)
  1. AZACITIDINE [Suspect]
     Active Substance: AZACITIDINE
     Indication: Chemotherapy
     Route: 065
  2. AZACITIDINE [Suspect]
     Active Substance: AZACITIDINE
     Indication: Acute myeloid leukaemia
  3. CHLORAMBUCIL [Suspect]
     Active Substance: CHLORAMBUCIL
     Indication: Acute myeloid leukaemia
     Route: 065
  4. CYTARABINE [Suspect]
     Active Substance: CYTARABINE
     Indication: Acute myeloid leukaemia
     Route: 065
  5. VENETOCLAX [Suspect]
     Active Substance: VENETOCLAX
     Indication: Acute myeloid leukaemia
     Route: 065
  6. POSACONAZOLE [Concomitant]
     Active Substance: POSACONAZOLE
     Indication: Antifungal prophylaxis
     Dosage: 300 MILLIGRAM, BID
     Route: 065
  7. POSACONAZOLE [Concomitant]
     Active Substance: POSACONAZOLE
     Route: 065
  8. DECITABINE [Concomitant]
     Active Substance: DECITABINE
     Indication: Myelodysplastic syndrome
     Dosage: 10 CYCLES
     Route: 065

REACTIONS (4)
  - Geotrichum infection [Recovering/Resolving]
  - Febrile neutropenia [Unknown]
  - Thrombocytopenia [Unknown]
  - Oral fungal infection [Recovering/Resolving]
